FAERS Safety Report 5067082-8 (Version None)
Quarter: 2006Q3

REPORT INFORMATION
  Report Type: 
  Country: None (occurrence: None)
  Receive Date: 20060727
  Receipt Date: 20060714
  Transmission Date: 20061208
  Serious: Yes (Hospitalization)
  Sender: FDA-Public Use
  Company Number: 2006S1006541

PATIENT
  Age: 62 Year
  Sex: Female
  Weight: 49.8957 kg

DRUGS (3)
  1. NITROFURANTOIN MONOHYDRATE/MACROCRYSTALS CAPSULES (100 MG) [Suspect]
     Indication: URINARY TRACT INFECTION
     Dosage: 100 MG; BID; PO
     Route: 048
     Dates: start: 20060701, end: 20060701
  2. VENLAFAXINE HCL [Concomitant]
  3. LEVOTHYROXINE SODIUM [Concomitant]

REACTIONS (9)
  - ABDOMINAL PAIN UPPER [None]
  - ARTHRALGIA [None]
  - ASTHENIA [None]
  - DEHYDRATION [None]
  - FATIGUE [None]
  - HEPATIC ENZYME INCREASED [None]
  - JAUNDICE [None]
  - MYALGIA [None]
  - VISION BLURRED [None]
